FAERS Safety Report 12871744 (Version 1)
Quarter: 2016Q4

REPORT INFORMATION
  Report Type: Spontaneous
  Country: US (occurrence: US)
  Receive Date: 20161021
  Receipt Date: 20161021
  Transmission Date: 20170207
  Serious: No
  Sender: FDA-Public Use
  Company Number: US-PURDUE-USA-2016-0131866

PATIENT
  Age: 46 Year
  Sex: Male
  Weight: 126.98 kg

DRUGS (4)
  1. BUMEX [Concomitant]
     Active Substance: BUMETANIDE
     Indication: FLUID RETENTION
  2. WARFARIN [Concomitant]
     Active Substance: WARFARIN
     Indication: PRODUCT USED FOR UNKNOWN INDICATION
  3. OXYCODONE HCL CR TABLETS (SIMILAR TO NDA 22-272) [Suspect]
     Active Substance: OXYCODONE HYDROCHLORIDE
     Indication: MIGRAINE WITH AURA
     Dosage: 10 MG, PRN
     Route: 048
     Dates: end: 20160603
  4. TOPROL XL [Concomitant]
     Active Substance: METOPROLOL SUCCINATE
     Indication: PRODUCT USED FOR UNKNOWN INDICATION
     Dosage: 100 MG, UNK

REACTIONS (6)
  - Fatigue [Unknown]
  - Nausea [Unknown]
  - Depression [Unknown]
  - Vomiting [Unknown]
  - Migraine with aura [Unknown]
  - Somnolence [Unknown]

NARRATIVE: CASE EVENT DATE: 20160617
